FAERS Safety Report 7652430-2 (Version None)
Quarter: 2011Q3

REPORT INFORMATION
  Report Type: 
  Country: None (occurrence: None)
  Receive Date: 20110803
  Receipt Date: 20110722
  Transmission Date: 20111222
  Serious: Yes (Hospitalization)
  Sender: FDA-Public Use
  Company Number: DE-ELI_LILLY_AND_COMPANY-DE201104006140

PATIENT
  Age: 66 Year
  Sex: Male

DRUGS (2)
  1. MARCUMAR [Concomitant]
  2. FORTEO [Suspect]
     Indication: OSTEOPOROSIS
     Dosage: UNK, QD
     Route: 058
     Dates: start: 20110408, end: 20110601

REACTIONS (10)
  - BACK PAIN [None]
  - WHITE BLOOD CELL COUNT DECREASED [None]
  - FATIGUE [None]
  - HEADACHE [None]
  - DIZZINESS [None]
  - COAGULATION TEST ABNORMAL [None]
  - ABDOMINAL PAIN UPPER [None]
  - WEIGHT INCREASED [None]
  - CHEST PAIN [None]
  - HOSPITALISATION [None]
